FAERS Safety Report 11694918 (Version 4)
Quarter: 2016Q1

REPORT INFORMATION
  Report Type: Report from Study
  Country: IT (occurrence: IT)
  Receive Date: 20151103
  Receipt Date: 20160128
  Transmission Date: 20160525
  Serious: Yes (Hospitalization, Other)
  Sender: FDA-Public Use
  Company Number: IT-GILEAD-2015-0179224

PATIENT
  Sex: Female
  Weight: 72 kg

DRUGS (23)
  1. MAALOX ANTACID [Concomitant]
     Active Substance: ALUMINUM HYDROXIDE\DIMETHICONE\MAGNESIUM HYDROXIDE
     Dosage: UNK
     Route: 048
     Dates: start: 20150922, end: 20151212
  2. BETAMETASONE DIPROPIONATO [Concomitant]
     Indication: PRURITUS
     Route: 048
     Dates: start: 20150922, end: 20151002
  3. RITUXIMAB [Suspect]
     Active Substance: RITUXIMAB
     Dosage: 660 MG, Q1WK
     Route: 042
     Dates: start: 20150720, end: 20150720
  4. MESALAZINE [Concomitant]
     Active Substance: MESALAMINE
     Indication: DIARRHOEA
     Dosage: UNK
     Route: 048
     Dates: start: 20151022, end: 20151028
  5. SALINE                             /00075401/ [Concomitant]
     Active Substance: SODIUM CHLORIDE
     Indication: DIARRHOEA
     Dosage: UNK
     Route: 042
     Dates: start: 20151020, end: 20151020
  6. IDELALISIB [Suspect]
     Active Substance: IDELALISIB
     Indication: CHRONIC LYMPHOCYTIC LEUKAEMIA
     Dosage: 150 MG, BID
     Route: 048
     Dates: start: 20150601, end: 20150625
  7. RUPATADINA [Concomitant]
     Indication: PRURITUS
     Route: 048
     Dates: start: 20150922, end: 20151001
  8. CETAPHIL                           /00498501/ [Concomitant]
     Indication: RASH
     Dosage: UNK
     Route: 061
     Dates: start: 20150727, end: 20151019
  9. LOPERAMIDE [Concomitant]
     Active Substance: LOPERAMIDE
     Indication: DIARRHOEA
     Dosage: UNK
     Route: 048
     Dates: start: 20151013, end: 20151028
  10. RITUXIMAB [Suspect]
     Active Substance: RITUXIMAB
     Dosage: 660 MG, Q1WK
     Route: 042
     Dates: start: 20150629, end: 20150629
  11. SALINE                             /00075401/ [Concomitant]
     Active Substance: SODIUM CHLORIDE
     Dosage: UNK
     Route: 042
     Dates: start: 20151022, end: 20151022
  12. IDELALISIB [Suspect]
     Active Substance: IDELALISIB
     Dosage: 150 MG, BID
     Route: 048
     Dates: start: 20151215
  13. RITUXIMAB [Suspect]
     Active Substance: RITUXIMAB
     Indication: CHRONIC LYMPHOCYTIC LEUKAEMIA
     Dosage: 660 MG, Q1WK
     Route: 042
     Dates: start: 20150601, end: 20150601
  14. DESOXIMETASONE. [Concomitant]
     Active Substance: DESOXIMETASONE
     Indication: RASH
     Route: 003
     Dates: start: 20150727, end: 20151019
  15. IDELALISIB [Suspect]
     Active Substance: IDELALISIB
     Dosage: 150 MG, BID
     Route: 048
     Dates: start: 20150810, end: 20151020
  16. RITUXIMAB [Suspect]
     Active Substance: RITUXIMAB
     Indication: CHROMOSOMAL DELETION
     Dosage: 660 MG, Q1WK
     Route: 042
     Dates: start: 20150608, end: 20150608
  17. RITUXIMAB [Suspect]
     Active Substance: RITUXIMAB
     Dosage: 660 MG, Q1WK
     Route: 042
     Dates: start: 20150622, end: 20150622
  18. RITUXIMAB [Suspect]
     Active Substance: RITUXIMAB
     Dosage: 660 MG, Q1WK
     Route: 042
     Dates: start: 20150713, end: 20150713
  19. IDELALISIB [Suspect]
     Active Substance: IDELALISIB
     Dosage: 100 MG, BID
     Route: 048
     Dates: start: 20151117, end: 20151215
  20. IDELALISIB [Suspect]
     Active Substance: IDELALISIB
     Indication: CHROMOSOMAL DELETION
     Dosage: 150 MG, BID
     Route: 048
     Dates: start: 20150626, end: 20150720
  21. RITUXIMAB [Suspect]
     Active Substance: RITUXIMAB
     Dosage: 660 MG, Q1WK
     Route: 042
     Dates: start: 20150615, end: 20150615
  22. RITUXIMAB [Suspect]
     Active Substance: RITUXIMAB
     Dosage: 660 MG, Q1WK
     Route: 042
     Dates: start: 20150706, end: 20150706
  23. RANITIDINE [Concomitant]
     Active Substance: RANITIDINE\RANITIDINE HYDROCHLORIDE
     Dosage: UNK
     Route: 042
     Dates: start: 20151022, end: 20151022

REACTIONS (1)
  - Diarrhoea haemorrhagic [Recovered/Resolved]

NARRATIVE: CASE EVENT DATE: 20151025
